FAERS Safety Report 9514639 (Version 1)
Quarter: 2013Q1

REPORT INFORMATION
  Report Type: Spontaneous
  Country: US (occurrence: None)
  Receive Date: 20130305
  Receipt Date: 20130305
  Transmission Date: 20140127
  Serious: Yes (Other)
  Sender: FDA-Public Use
  Company Number: 163-21880-12112126

PATIENT
  Sex: Male
  Weight: 99.79 kg

DRUGS (1)
  1. REVLIMID (LENALIDOMIDE) [Suspect]
     Route: 048
     Dates: start: 20110915

REACTIONS (1)
  - Nausea [None]
